FAERS Safety Report 10138560 (Version 1)
Quarter: 2014Q2

REPORT INFORMATION
  Report Type: Spontaneous
  Country: US (occurrence: US)
  Receive Date: 20140429
  Receipt Date: 20140429
  Transmission Date: 20141212
  Serious: No
  Sender: FDA-Public Use
  Company Number: US-PFIZER INC-2014114865

PATIENT
  Age: 51 Year
  Sex: Female
  Weight: 54.42 kg

DRUGS (1)
  1. SERTRALINE HCL [Suspect]
     Indication: ANXIETY
     Dosage: UNK, DAILY
     Dates: start: 2007

REACTIONS (2)
  - Abdominal pain upper [Recovered/Resolved]
  - Drug ineffective [Unknown]
